FAERS Safety Report 5900702-1 (Version None)
Quarter: 2008Q3

REPORT INFORMATION
  Report Type: 
  Country: None (occurrence: None)
  Receive Date: 20080926
  Receipt Date: 20080915
  Transmission Date: 20090109
  Serious: Yes (Other)
  Sender: FDA-Public Use
  Company Number: DE-PFIZER INC-2008079681

PATIENT
  Age: 50 Year
  Sex: Female

DRUGS (1)
  1. CHANTIX [Suspect]
     Indication: SMOKING CESSATION THERAPY
     Route: 048

REACTIONS (6)
  - ABDOMINAL PAIN UPPER [None]
  - APHTHOUS STOMATITIS [None]
  - COORDINATION ABNORMAL [None]
  - DIARRHOEA [None]
  - FEELING COLD [None]
  - HYPOAESTHESIA [None]
